FAERS Safety Report 9783165 (Version 1)
Quarter: 2013Q4

REPORT INFORMATION
  Report Type: Spontaneous
  Country: US (occurrence: None)
  Receive Date: 20131223
  Receipt Date: 20131223
  Transmission Date: 20140711
  Serious: Yes (Other)
  Sender: FDA-Public Use
  Company Number: EUS-2012-00015

PATIENT
  Age: 10 Year
  Sex: Female
  Weight: 36 kg

DRUGS (7)
  1. ERWINASE [Suspect]
     Indication: ACUTE LYMPHOCYTIC LEUKAEMIA
     Route: 042
     Dates: start: 20100625, end: 2010
  2. CYTARABINE [Concomitant]
  3. GCSF [Concomitant]
  4. DEXAMETHASONE [Concomitant]
  5. BENADRYL [Concomitant]
  6. ZOFRAN [Concomitant]
  7. HYDROXYZINE [Concomitant]

REACTIONS (3)
  - Rash pruritic [None]
  - Rash erythematous [None]
  - Hypersensitivity [None]
